FAERS Safety Report 10019823 (Version 1)
Quarter: 2014Q1

REPORT INFORMATION
  Report Type: Spontaneous
  Country: US (occurrence: US)
  Receive Date: 20140318
  Receipt Date: 20140318
  Transmission Date: 20141002
  Serious: No
  Sender: FDA-Public Use
  Company Number: US-GALDERMA-US13004170

PATIENT
  Age: 65 Year
  Sex: Female

DRUGS (3)
  1. MIRVASO (BRIMONIDINE) TOPICAL GEL, 0.33% [Suspect]
     Indication: ROSACEA
     Dosage: 0.33%
     Route: 061
     Dates: start: 201310, end: 201310
  2. METROCREAM (METRONIDAZOLE) TOPICAL CREAM, 0.75% [Concomitant]
     Route: 061
  3. ORACEA (DOXYCYCLINE, USP) CAPSULES 40 MG [Concomitant]
     Dosage: 40 MG
     Route: 048

REACTIONS (1)
  - Skin warm [Recovered/Resolved]
